FAERS Safety Report 24964454 (Version 2)
Quarter: 2025Q2

REPORT INFORMATION
  Report Type: Other
  Country: CD (occurrence: CD)
  Receive Date: 20250213
  Receipt Date: 20250526
  Transmission Date: 20250717
  Serious: Yes (Death, Hospitalization)
  Sender: ANI
  Company Number: CD-ANIPHARMA-015557

PATIENT
  Age: 26 Year
  Sex: Male

DRUGS (6)
  1. CLOPIDOGREL [Suspect]
     Active Substance: CLOPIDOGREL BISULFATE
     Indication: Left ventricular dysfunction
  2. ASPIRIN [Concomitant]
     Active Substance: ASPIRIN
     Indication: Left ventricular dysfunction
  3. HEPARIN [Concomitant]
     Active Substance: HEPARIN SODIUM
     Indication: Left ventricular dysfunction
  4. ASPIRIN [Concomitant]
     Active Substance: ASPIRIN
     Indication: Hypokinesia
  5. HEPARIN [Concomitant]
     Active Substance: HEPARIN SODIUM
     Indication: Hypokinesia
  6. CLOPIDOGREL [Suspect]
     Active Substance: CLOPIDOGREL BISULFATE
     Indication: Hypokinesia

REACTIONS (1)
  - Drug ineffective [Fatal]
